FAERS Safety Report 5833286-7 (Version None)
Quarter: 2008Q3

REPORT INFORMATION
  Report Type: 
  Country: None (occurrence: None)
  Receive Date: 20080804
  Receipt Date: 20080804
  Transmission Date: 20090109
  Serious: Yes (Hospitalization)
  Sender: FDA-Public Use
  Company Number: None

PATIENT
  Sex: Male
  Weight: 97.7 kg

DRUGS (10)
  1. GLEEVEC [Suspect]
     Indication: PROSTATE CANCER
     Dosage: 300 MG QD PO
     Route: 048
     Dates: start: 20080715, end: 20080729
  2. SORAFENIB [Suspect]
     Indication: PROSTATE CANCER
     Dosage: 400 MG QD PO
     Route: 048
     Dates: start: 20080715
  3. CALCITRIOL [Concomitant]
  4. CALCIUM SUPPLEMENTS [Concomitant]
  5. XANAX [Concomitant]
  6. OXYCONTIN [Concomitant]
  7. ALPRAZOLAM [Concomitant]
  8. MAGNESIUM OXIDE [Concomitant]
  9. CLONAZEPAM [Concomitant]
  10. OMEPRAZOLE [Concomitant]

REACTIONS (6)
  - ABDOMINAL PAIN [None]
  - BLOOD URINE PRESENT [None]
  - NAUSEA [None]
  - PYURIA [None]
  - URINARY TRACT INFECTION [None]
  - VOMITING [None]
